FAERS Safety Report 20551025 (Version 1)
Quarter: 2022Q1

REPORT INFORMATION
  Report Type: Spontaneous
  Country: CN (occurrence: CN)
  Receive Date: 20220304
  Receipt Date: 20220304
  Transmission Date: 20220423
  Serious: Yes (Hospitalization)
  Sender: FDA-Public Use
  Company Number: CN-BAYER-2022A030637

PATIENT
  Age: 74 Year
  Sex: Male

DRUGS (1)
  1. XARELTO [Suspect]
     Active Substance: RIVAROXABAN
     Indication: Atrial fibrillation
     Dosage: 10 MG, QD
     Route: 048
     Dates: start: 20210510, end: 20210524

REACTIONS (5)
  - Chest discomfort [Unknown]
  - Dyspnoea [Unknown]
  - Epistaxis [Recovered/Resolved]
  - Prescribed underdose [Unknown]
  - Underdose [Unknown]

NARRATIVE: CASE EVENT DATE: 20210510
